FAERS Safety Report 23657243 (Version 1)
Quarter: 2024Q1

REPORT INFORMATION
  Report Type: Spontaneous
  Country: CA (occurrence: CA)
  Receive Date: 20240321
  Receipt Date: 20240321
  Transmission Date: 20240410
  Serious: Yes (Life-Threatening, Hospitalization, Other)
  Sender: FDA-Public Use
  Company Number: CA-002147023-NVSC2023CA135456

PATIENT
  Age: 61 Year
  Sex: Male

DRUGS (37)
  1. BUPROPION [Suspect]
     Active Substance: BUPROPION
     Indication: Bipolar I disorder
     Dosage: UNK
     Route: 065
  2. BUPROPION [Suspect]
     Active Substance: BUPROPION
     Indication: Mixed anxiety and depressive disorder
     Dosage: UNK
     Route: 065
  3. BUPROPION [Suspect]
     Active Substance: BUPROPION
     Indication: Bipolar disorder
  4. LAMOTRIGINE [Suspect]
     Active Substance: LAMOTRIGINE
     Indication: Bipolar I disorder
     Dosage: UNK
     Route: 065
  5. LAMOTRIGINE [Suspect]
     Active Substance: LAMOTRIGINE
     Indication: Mixed anxiety and depressive disorder
     Dosage: UNK
     Route: 065
  6. LITHIUM [Suspect]
     Active Substance: LITHIUM
     Indication: Bipolar I disorder
     Dosage: UNK
     Route: 065
  7. LITHIUM [Suspect]
     Active Substance: LITHIUM
     Indication: Mixed anxiety and depressive disorder
     Dosage: UNK
     Route: 065
  8. OLANZAPINE [Suspect]
     Active Substance: OLANZAPINE
     Indication: Agitation
     Dosage: 20 MG
     Route: 065
  9. OLANZAPINE [Suspect]
     Active Substance: OLANZAPINE
     Indication: Bipolar I disorder
     Dosage: UNK
     Route: 065
  10. OLANZAPINE [Suspect]
     Active Substance: OLANZAPINE
     Indication: Mixed anxiety and depressive disorder
     Dosage: UNK
     Route: 065
  11. OLANZAPINE [Suspect]
     Active Substance: OLANZAPINE
     Indication: Bipolar disorder
  12. ARIPIPRAZOLE [Concomitant]
     Active Substance: ARIPIPRAZOLE
     Indication: Mixed anxiety and depressive disorder
     Dosage: UNK
     Route: 065
  13. ARIPIPRAZOLE [Concomitant]
     Active Substance: ARIPIPRAZOLE
     Indication: Psychotic disorder
     Dosage: UNK
     Route: 065
  14. BREXPIPRAZOLE [Concomitant]
     Active Substance: BREXPIPRAZOLE
     Indication: Mixed anxiety and depressive disorder
     Dosage: UNK
     Route: 065
  15. BREXPIPRAZOLE [Concomitant]
     Active Substance: BREXPIPRAZOLE
     Indication: Psychotic disorder
     Dosage: UNK
     Route: 065
  16. CARBAMAZEPINE [Concomitant]
     Active Substance: CARBAMAZEPINE
     Indication: Mixed anxiety and depressive disorder
     Dosage: UNK
     Route: 065
  17. CARBAMAZEPINE [Concomitant]
     Active Substance: CARBAMAZEPINE
     Indication: Psychotic disorder
     Dosage: UNK
     Route: 065
  18. CLONAZEPAM [Concomitant]
     Active Substance: CLONAZEPAM
     Indication: Agitation
     Dosage: 2 MG
     Route: 065
  19. CLONAZEPAM [Concomitant]
     Active Substance: CLONAZEPAM
     Indication: Mixed anxiety and depressive disorder
     Dosage: UNK
     Route: 065
  20. CLONAZEPAM [Concomitant]
     Active Substance: CLONAZEPAM
     Indication: Restless legs syndrome
     Dosage: UNK
     Route: 065
  21. CLOZAPINE [Concomitant]
     Active Substance: CLOZAPINE
     Indication: Mixed anxiety and depressive disorder
     Dosage: UNK
     Route: 065
  22. CLOZAPINE [Concomitant]
     Active Substance: CLOZAPINE
     Indication: Psychotic disorder
     Dosage: UNK
     Route: 065
  23. HALOPERIDOL [Concomitant]
     Active Substance: HALOPERIDOL
     Indication: Agitation
     Dosage: 15 MG
     Route: 065
  24. HALOPERIDOL [Concomitant]
     Active Substance: HALOPERIDOL
     Indication: Mixed anxiety and depressive disorder
     Dosage: UNK
     Route: 065
  25. LORAZEPAM [Concomitant]
     Active Substance: LORAZEPAM
     Indication: Mixed anxiety and depressive disorder
     Dosage: 0.5 MG, QD
     Route: 065
  26. LURASIDONE [Concomitant]
     Active Substance: LURASIDONE
     Indication: Mixed anxiety and depressive disorder
     Dosage: UNK
     Route: 065
  27. LURASIDONE [Concomitant]
     Active Substance: LURASIDONE
     Indication: Psychotic disorder
     Dosage: UNK
     Route: 065
  28. OXAZEPAM [Concomitant]
     Active Substance: OXAZEPAM
     Indication: Anxiety
     Dosage: 15 MG
     Route: 065
  29. OXAZEPAM [Concomitant]
     Active Substance: OXAZEPAM
     Indication: Mixed anxiety and depressive disorder
     Dosage: UNK
     Route: 065
  30. QUETIAPINE [Concomitant]
     Active Substance: QUETIAPINE
     Indication: Mixed anxiety and depressive disorder
     Dosage: 500 MG
     Route: 065
  31. QUETIAPINE [Concomitant]
     Active Substance: QUETIAPINE
     Indication: Bipolar disorder
     Dosage: UNK
     Route: 065
  32. QUETIAPINE [Concomitant]
     Active Substance: QUETIAPINE
     Indication: Depression
     Dosage: UNK
     Route: 065
  33. TOPIRAMATE [Concomitant]
     Active Substance: TOPIRAMATE
     Indication: Post-traumatic stress disorder
     Dosage: 275 MG
     Route: 065
  34. TOPIRAMATE [Concomitant]
     Active Substance: TOPIRAMATE
     Indication: Mixed anxiety and depressive disorder
     Dosage: UNK
     Route: 065
  35. TOPIRAMATE [Concomitant]
     Active Substance: TOPIRAMATE
     Indication: Obsessive-compulsive disorder
     Dosage: UNK
     Route: 065
  36. VALPROIC ACID [Concomitant]
     Active Substance: VALPROIC ACID
     Indication: Mixed anxiety and depressive disorder
     Dosage: UNK
     Route: 065
  37. VALPROIC ACID [Concomitant]
     Active Substance: VALPROIC ACID
     Indication: Psychotic disorder
     Dosage: UNK
     Route: 065

REACTIONS (4)
  - Mania [Unknown]
  - Delirium [Unknown]
  - Drug intolerance [Unknown]
  - Drug ineffective [Unknown]
